FAERS Safety Report 24152389 (Version 1)
Quarter: 2024Q3

REPORT INFORMATION
  Report Type: Spontaneous
  Country: CN (occurrence: CN)
  Receive Date: 20240730
  Receipt Date: 20240730
  Transmission Date: 20241016
  Serious: Yes (Other)
  Sender: ASTELLAS
  Company Number: CN-ASTELLAS-2024US021133

PATIENT
  Age: 39 Year
  Sex: Female

DRUGS (9)
  1. GILTERITINIB [Suspect]
     Active Substance: GILTERITINIB
     Indication: Acute myeloid leukaemia refractory
     Route: 048
     Dates: start: 20210608
  2. GILTERITINIB [Suspect]
     Active Substance: GILTERITINIB
     Indication: FLT3 gene mutation
     Route: 048
  3. GILTERITINIB [Suspect]
     Active Substance: GILTERITINIB
     Route: 048
     Dates: start: 202209
  4. CYTARABINE [Concomitant]
     Active Substance: CYTARABINE
     Indication: Acute myeloid leukaemia refractory
     Dosage: UNK UNK, UNKNOWN FREQ.
     Route: 065
  5. CYTARABINE [Concomitant]
     Active Substance: CYTARABINE
     Indication: FLT3 gene mutation
     Route: 065
  6. VENETOCLAX [Concomitant]
     Active Substance: VENETOCLAX
     Indication: Acute myeloid leukaemia refractory
     Route: 065
     Dates: start: 202111
  7. VENETOCLAX [Concomitant]
     Active Substance: VENETOCLAX
     Indication: FLT3 gene mutation
  8. SORAFENIB [Concomitant]
     Active Substance: SORAFENIB
     Indication: FLT3 gene mutation
     Dosage: UNK, UNKNOWN FREQ.
     Route: 065
     Dates: start: 202103
  9. SORAFENIB [Concomitant]
     Active Substance: SORAFENIB
     Indication: Acute myeloid leukaemia refractory

REACTIONS (4)
  - Immune-mediated hepatic disorder [Recovering/Resolving]
  - Haematotoxicity [Recovering/Resolving]
  - Product use issue [Unknown]
  - Off label use [Unknown]

NARRATIVE: CASE EVENT DATE: 20211101
